FAERS Safety Report 20218220 (Version 1)
Quarter: 2021Q4

REPORT INFORMATION
  Report Type: Other
  Country: ZA (occurrence: None)
  Receive Date: 20211222
  Receipt Date: 20211222
  Transmission Date: 20220303
  Serious: No
  Sender: FDA-Public Use
  Company Number: ZA-ROCHE-2852951

PATIENT
  Age: 42 Year
  Sex: Female

DRUGS (2)
  1. OCREVUS [Suspect]
     Active Substance: OCRELIZUMAB
     Indication: Multiple sclerosis
     Dosage: THEN 600MG EVERY 6 MONTHS
     Route: 041
     Dates: start: 20210614
  2. COVID-19 VACCINE [Concomitant]
     Dates: start: 20210527

REACTIONS (2)
  - Inappropriate schedule of product administration [Unknown]
  - SARS-CoV-2 test positive [Unknown]

NARRATIVE: CASE EVENT DATE: 20211215
